FAERS Safety Report 7930239-X (Version None)
Quarter: 2011Q4

REPORT INFORMATION
  Report Type: 
  Country: None (occurrence: None)
  Receive Date: 20111117
  Receipt Date: 20111103
  Transmission Date: 20120403
  Serious: Yes (Other)
  Sender: FDA-Public Use
  Company Number: 1103730

PATIENT
  Age: 69 Year
  Sex: Male

DRUGS (17)
  1. FLUCONAZOLE [Concomitant]
  2. VINCRISTINE SULFATE [Suspect]
     Indication: T-CELL LYMPHOMA
     Dosage: 1.4 MG/M^2, INTRAVENOUS BOLUS
     Route: 040
  3. METHOTREXATE [Suspect]
     Indication: T-CELL LYMPHOMA
     Dosage: 12 MG, INTRATHECAL
     Route: 037
  4. LEUCOVORIN CALCIUM [Concomitant]
  5. DOXORUBICIN HCL [Suspect]
     Indication: T-CELL LYMPHOMA
     Dosage: 50 MG/M^2
  6. ALEMTUZUMAB [Suspect]
     Indication: T-CELL LYMPHOMA
     Dosage: 30 MG, SUBCUTANEOUS
     Route: 058
  7. DIPHENHYDRAMINE HCL [Concomitant]
  8. SULFAMETHOXAZOLE AND TRIMETHOPRIM [Concomitant]
  9. DEXAMETHASONE [Suspect]
     Indication: T-CELL LYMPHOMA
     Dosage: 40 MG/DAY, INTRAVENOUS (NOT OTHERWISE SPECIFIED)
     Route: 042
  10. CYCLOPHOSPHAMIDE [Suspect]
     Dosage: 300 MG/M^2, INTRAVENOUS (NOT OTHERWISE SPECIFIED)
     Route: 042
  11. FILGRASTIM [Concomitant]
  12. CYTARABINE [Suspect]
     Dosage: 100 MG, INTRATHECAL
     Route: 037
  13. CYTARABINE [Suspect]
     Indication: T-CELL LYMPHOMA
     Dosage: 3 G/M^2 TWICE A DAY INTRAVENOUS (NOT OTHERWISE SPECIFIED)
     Route: 042
  14. MESNA [Concomitant]
  15. ACETAMINOPHEN [Concomitant]
  16. ACYCLOVIR [Concomitant]
  17. METHOTREXATE [Suspect]
     Indication: T-CELL LYMPHOMA
     Dosage: 200 MG/M^2 INTRAVENOUS (NOT OTHERWISE SPECIFIED), 800 MG/M^2 INTRAVENOUS (NOT OTHERWISE SPECIFIED)

REACTIONS (1)
  - NEUTROPENIA [None]
